FAERS Safety Report 9896665 (Version 1)
Quarter: 2014Q1

REPORT INFORMATION
  Report Type: Spontaneous
  Country: US (occurrence: US)
  Receive Date: 20140213
  Receipt Date: 20140213
  Transmission Date: 20141002
  Serious: No
  Sender: FDA-Public Use
  Company Number: US-BRISTOL-MYERS SQUIBB COMPANY-18883975

PATIENT
  Age: 60 Year
  Sex: Female
  Weight: 72.56 kg

DRUGS (13)
  1. ABATACEPT SUBQ INJECTION 125MG/ML [Suspect]
     Indication: RHEUMATOID ARTHRITIS
     Dosage: 1 DF : 125MG/ML
     Route: 058
  2. HUMIRA [Concomitant]
     Indication: RHEUMATOID ARTHRITIS
     Dosage: 1 DF: 40MG/0.8
  3. MULTIVITAMIN WITH MINERALS [Concomitant]
     Dosage: TAB
  4. GLUCOSAMINE [Concomitant]
     Dosage: TAB 200-300
  5. TYLENOL [Concomitant]
     Dosage: TAB
  6. LISINOPRIL [Concomitant]
     Dosage: TAB
  7. PLAQUENIL [Concomitant]
     Dosage: TAB
  8. PREDNISONE [Concomitant]
     Dosage: TAB
  9. COSOPT [Concomitant]
     Dosage: 0.5% OP
  10. FOLIC ACID [Concomitant]
     Dosage: CAP
  11. OXYCODONE [Concomitant]
     Dosage: TAB
  12. HYDROCHLOROTHIAZIDE [Concomitant]
     Dosage: CAP
  13. HYDROXYCHLOROQUINE [Concomitant]
     Dosage: TAB

REACTIONS (1)
  - Drug ineffective [Unknown]
